FAERS Safety Report 5258428-6 (Version None)
Quarter: 2007Q1

REPORT INFORMATION
  Report Type: 
  Country: None (occurrence: None)
  Receive Date: 20070308
  Receipt Date: 20070301
  Transmission Date: 20070707
  Serious: Yes (Death)
  Sender: FDA-Public Use
  Company Number: AU-ELI_LILLY_AND_COMPANY-AU200703000968

PATIENT
  Age: 56 Year
  Sex: Male

DRUGS (3)
  1. OLANZAPINE [Suspect]
     Dosage: 10 MG, DAILY (1/D)
     Route: 048
     Dates: start: 20050420
  2. SEROQUEL [Concomitant]
     Indication: AFFECTIVE DISORDER
     Dosage: 800 MG, DAILY (1/D)
     Route: 048
     Dates: start: 20040610, end: 20050420
  3. LITHIUM CARBONATE [Concomitant]
     Dosage: 1 G, DAILY (1/D)
     Route: 048
     Dates: start: 20040816

REACTIONS (1)
  - DEATH [None]
